FAERS Safety Report 10273528 (Version 1)
Quarter: 2014Q2

REPORT INFORMATION
  Report Type: Spontaneous
  Country: US (occurrence: None)
  Receive Date: 20140630
  Receipt Date: 20140630
  Transmission Date: 20141212
  Serious: Yes (Other)
  Sender: FDA-Public Use
  Company Number: None

PATIENT
  Age: 37 Year
  Sex: Female
  Weight: 61.24 kg

DRUGS (1)
  1. CLEARASIL TOPICAL CREAM [Suspect]
     Indication: ACNE
     Dates: start: 19930601, end: 19930601

REACTIONS (1)
  - Hypersensitivity [None]
